FAERS Safety Report 9365079 (Version 1)
Quarter: 2013Q2

REPORT INFORMATION
  Report Type: Spontaneous
  Country: AU (occurrence: AU)
  Receive Date: 20130624
  Receipt Date: 20130624
  Transmission Date: 20140414
  Serious: Yes (Hospitalization)
  Sender: FDA-Public Use
  Company Number: AU-PFIZER INC-2013186479

PATIENT
  Age: 70 Year
  Sex: Male

DRUGS (2)
  1. RAMIPRIL [Suspect]
     Route: 065
  2. DILANTIN [Concomitant]

REACTIONS (3)
  - Laceration [Recovering/Resolving]
  - Fall [Recovering/Resolving]
  - Condition aggravated [Recovering/Resolving]
